FAERS Safety Report 5104834-X (Version None)
Quarter: 2006Q3

REPORT INFORMATION
  Report Type: 
  Country: None (occurrence: None)
  Receive Date: 20060911
  Receipt Date: 20060829
  Transmission Date: 20061208
  Serious: Yes (Disabling, Other)
  Sender: FDA-Public Use
  Company Number: 2006106095

PATIENT
  Age: 49 Year
  Sex: Female
  Weight: 113.3993 kg

DRUGS (5)
  1. LIPITOR [Suspect]
     Indication: BLOOD CHOLESTEROL INCREASED
     Dosage: 20 MG (20 MG, 1 IN 1 D),
     Dates: start: 20060201, end: 20060812
  2. GLUCOVANCE [Concomitant]
  3. VALSARTAN [Concomitant]
  4. ALLEGRA [Concomitant]
  5. ACTOS [Concomitant]

REACTIONS (14)
  - ABASIA [None]
  - ARTHRALGIA [None]
  - COORDINATION ABNORMAL [None]
  - DYSSTASIA [None]
  - FALL [None]
  - FEELING HOT AND COLD [None]
  - HYPOAESTHESIA [None]
  - MIDDLE INSOMNIA [None]
  - MUSCLE SPASMS [None]
  - MUSCULOSKELETAL DISCOMFORT [None]
  - MYALGIA [None]
  - PAIN IN EXTREMITY [None]
  - SCREAMING [None]
  - WEIGHT INCREASED [None]
